FAERS Safety Report 24573109 (Version 2)
Quarter: 2024Q4

REPORT INFORMATION
  Report Type: Spontaneous
  Country: JP (occurrence: JP)
  Receive Date: 20241101
  Receipt Date: 20241107
  Transmission Date: 20250115
  Serious: Yes (Other)
  Sender: JAZZ
  Company Number: JP-JAZZ PHARMACEUTICALS-2024-JP-019955

PATIENT

DRUGS (1)
  1. VYXEOS [Suspect]
     Active Substance: CYTARABINE\DAUNORUBICIN
     Indication: Acute myeloid leukaemia
     Dosage: UNK
     Route: 042
     Dates: start: 20241017, end: 20241021

REACTIONS (4)
  - Intraventricular haemorrhage [Unknown]
  - Epilepsy [Unknown]
  - Gastrointestinal haemorrhage [Unknown]
  - Pyrexia [Unknown]

NARRATIVE: CASE EVENT DATE: 20241024
